FAERS Safety Report 11343560 (Version 2)
Quarter: 2015Q3

REPORT INFORMATION
  Report Type: Spontaneous
  Country: TR (occurrence: TR)
  Receive Date: 20150806
  Receipt Date: 20150819
  Transmission Date: 20151125
  Serious: Yes (Hospitalization)
  Sender: FDA-Public Use
  Company Number: TR-ALKEM-001106

PATIENT
  Age: 30 Year
  Sex: Female

DRUGS (1)
  1. CEFUROXIME. [Suspect]
     Active Substance: CEFUROXIME
     Indication: TONSILLITIS
     Route: 048

REACTIONS (6)
  - Rash [Recovered/Resolved]
  - Hypersensitivity [Recovered/Resolved]
  - Swelling [Recovered/Resolved]
  - Erythema [Recovered/Resolved]
  - Uveitis [Recovered/Resolved]
  - Ear pain [Recovered/Resolved]
